FAERS Safety Report 20804091 (Version 1)
Quarter: 2022Q2

REPORT INFORMATION
  Report Type: Spontaneous
  Country: US (occurrence: US)
  Receive Date: 20220509
  Receipt Date: 20220509
  Transmission Date: 20220720
  Serious: No
  Sender: FDA-Public Use
  Company Number: US-GALDERMA-US2022005145

PATIENT

DRUGS (11)
  1. PROACTIV MD ADAPALENE ACNE TREATMENT [Suspect]
     Active Substance: ADAPALENE
     Indication: Erythema
     Dosage: 1 DOSAGE FORM, ONCE
     Route: 061
     Dates: start: 202204, end: 202204
  2. PROACTIV MD ADAPALENE ACNE TREATMENT [Suspect]
     Active Substance: ADAPALENE
     Indication: Acne
  3. Proactiv MD Ultra Gentle Cleanser [Concomitant]
     Indication: Erythema
     Dosage: 1 DOSAGE FORM, ONCE
     Route: 061
     Dates: start: 202204, end: 202204
  4. Proactiv MD Ultra Gentle Cleanser [Concomitant]
     Indication: Acne
  5. Proactiv MD Ultra Hydrating Moisturizer [Concomitant]
     Indication: Erythema
     Dosage: 1 DOSAGE FORM, ONCE
     Route: 061
     Dates: start: 202204, end: 202204
  6. Proactiv MD Ultra Hydrating Moisturizer [Concomitant]
     Indication: Acne
  7. PROACTIV ACNE BODY WASH [Concomitant]
     Active Substance: SALICYLIC ACID
     Indication: Erythema
     Dosage: 1 DOSAGE FORM, ONCE
     Route: 061
     Dates: start: 202204, end: 202204
  8. PROACTIV ACNE BODY WASH [Concomitant]
     Active Substance: SALICYLIC ACID
     Indication: Acne
  9. Proactiv Post Acne Scar Gel [Concomitant]
     Indication: Erythema
     Dosage: 1 DOSAGE FORM, ONCE
     Route: 061
     Dates: start: 202204, end: 202204
  10. Proactiv Post Acne Scar Gel [Concomitant]
     Indication: Acne
  11. VITAMINS [Concomitant]
     Active Substance: VITAMINS
     Indication: Product used for unknown indication
     Route: 065

REACTIONS (3)
  - Skin burning sensation [Recovering/Resolving]
  - Skin irritation [Recovering/Resolving]
  - Erythema [Recovering/Resolving]

NARRATIVE: CASE EVENT DATE: 20220401
